FAERS Safety Report 9630144 (Version 2)
Quarter: 2013Q4

REPORT INFORMATION
  Report Type: Spontaneous
  Country: US (occurrence: US)
  Receive Date: 20131017
  Receipt Date: 20131114
  Transmission Date: 20140711
  Serious: Yes (Other)
  Sender: FDA-Public Use
  Company Number: PHEH2013US021494

PATIENT
  Sex: Female

DRUGS (25)
  1. EXELON PATCH [Suspect]
     Indication: DEMENTIA
     Dosage: 9.5 MG, QD
     Route: 062
  2. EXELON PATCH [Suspect]
     Dosage: 13.3 MG, QD
     Route: 062
  3. EXELON PATCH [Suspect]
     Dosage: 9.5 MG, QD
     Route: 062
  4. METHYL PHENIDATE [Concomitant]
     Dosage: UNK UKN, UNK
  5. XENICAL [Concomitant]
     Dosage: UNK UKN, UNK
  6. ACYCLOVIR [Concomitant]
     Dosage: UNK UKN, UNK
  7. KEPRA [Concomitant]
     Dosage: UNK UKN, UNK
  8. LIOTHYRONINE [Concomitant]
     Dosage: UNK UKN, UNK
  9. LEVOTHYROXINE [Concomitant]
     Dosage: UNK UKN, UNK
  10. BUPROPION [Concomitant]
     Dosage: UNK UKN, UNK
  11. LYRICA [Concomitant]
     Dosage: UNK UKN, UNK
  12. XYREM [Concomitant]
     Dosage: UNK UKN, UNK
  13. FENADINE [Concomitant]
     Indication: HYPOTENSION
     Dosage: UNK UKN, UNK
  14. ANUSOL//ZINC SULFATE [Concomitant]
     Dosage: UNK UKN, UNK
  15. LYSINE [Concomitant]
     Dosage: UNK UKN, UNK
  16. VIT C [Concomitant]
     Dosage: UNK UKN, UNK
  17. METAMUCIL [Concomitant]
     Dosage: UNK UKN, UNK
  18. MAGNESIUM CITRATE [Concomitant]
     Dosage: UNK UKN, UNK
  19. FISH OIL [Concomitant]
     Dosage: UNK UKN, UNK
  20. MONTELUKAST [Concomitant]
     Dosage: UNK UKN, UNK
  21. ADVACAL//CALCIUM [Concomitant]
     Dosage: UNK UKN, UNK
  22. PROBIOTICS [Concomitant]
     Dosage: UNK UKN, UNK
  23. IRON [Concomitant]
     Dosage: UNK UKN, UNK
  24. VITAMIN B1 [Concomitant]
     Dosage: UNK UKN, UNK
  25. THIAMINE [Concomitant]
     Indication: VITAMIN B1 DECREASED
     Dosage: UNK UKN, UNK

REACTIONS (4)
  - Ankle fracture [Unknown]
  - Application site pruritus [Unknown]
  - Application site vesicles [Recovering/Resolving]
  - Application site pain [Unknown]
